FAERS Safety Report 4314967-3 (Version None)
Quarter: 2004Q1

REPORT INFORMATION
  Report Type: 
  Country: None (occurrence: None)
  Receive Date: 20040310
  Receipt Date: 20040310
  Transmission Date: 20041129
  Serious: Yes (Hospitalization)
  Sender: FDA-Public Use
  Company Number: None

PATIENT
  Sex: Female
  Weight: 65.7716 kg

DRUGS (7)
  1. REMERON [Suspect]
     Indication: DEPRESSION
     Dosage: 60 MG AT BEDTIME
     Dates: start: 20030901
  2. WELLBUTRIN XL [Suspect]
     Indication: DEPRESSION
     Dosage: ONE TAB Q AM
     Dates: start: 20030101
  3. ADDERALL [Concomitant]
  4. PAMELOR [Concomitant]
  5. ZYPREXA [Concomitant]
  6. TRAZODONE HCL [Concomitant]
  7. ATIVAN [Concomitant]

REACTIONS (2)
  - GRAND MAL CONVULSION [None]
  - PETIT MAL EPILEPSY [None]
